FAERS Safety Report 8160870-0 (Version None)
Quarter: 2012Q1

REPORT INFORMATION
  Report Type: 
  Country: None (occurrence: None)
  Receive Date: 20120223
  Receipt Date: 20120220
  Transmission Date: 20120608
  Serious: Yes (Other)
  Sender: FDA-Public Use
  Company Number: PHHY2011US06549

PATIENT
  Sex: Female

DRUGS (11)
  1. GILENYA [Suspect]
     Indication: MULTIPLE SCLEROSIS
     Dosage: 0.5 MG, QD
     Route: 048
     Dates: start: 20110104, end: 20111101
  2. RESILAR [Concomitant]
     Dosage: UNK UKN, UNK
     Route: 048
     Dates: start: 20110101
  3. FISH OIL [Concomitant]
     Dosage: 1200 MG, UNK
  4. VESICARE [Concomitant]
  5. GILENYA [Suspect]
     Dosage: 0.5 MG, QD
     Route: 048
     Dates: start: 20120218
  6. LISINOPRIL [Concomitant]
     Dosage: UNK UKN, UNK
     Route: 048
  7. ADAVIN [Concomitant]
  8. FAMPRIDINE [Concomitant]
     Dosage: UNK UKN, UNK
     Route: 048
     Dates: start: 20110101
  9. ATIVAN [Concomitant]
     Dosage: UNK UKN, UNK
     Route: 048
  10. CITRACAL + D [Concomitant]
  11. GILENYA [Suspect]
     Dosage: 0.5 MG, QD
     Route: 048
     Dates: start: 20120106, end: 20120210

REACTIONS (6)
  - CATARACT [None]
  - LYMPHOEDEMA [None]
  - FATIGUE [None]
  - LIVER DISORDER [None]
  - VITREOUS DETACHMENT [None]
  - NAUSEA [None]
